FAERS Safety Report 12897937 (Version 1)
Quarter: 2016Q4

REPORT INFORMATION
  Report Type: Spontaneous
  Country: US (occurrence: US)
  Receive Date: 20161028
  Receipt Date: 20161028
  Transmission Date: 20170207
  Serious: No
  Sender: FDA-Public Use
  Company Number: None

PATIENT
  Age: 26 Year
  Sex: Male

DRUGS (1)
  1. GLATOPA [Suspect]
     Active Substance: GLATIRAMER ACETATE
     Indication: MULTIPLE SCLEROSIS
     Dosage: 20MG/ML DAILY SUBCUTANEOUSLY
     Route: 058
     Dates: start: 20160702

REACTIONS (4)
  - Feeling abnormal [None]
  - Heart rate increased [None]
  - Dyspnoea [None]
  - Head discomfort [None]

NARRATIVE: CASE EVENT DATE: 20161025
